FAERS Safety Report 22622519 (Version 1)
Quarter: 2023Q2

REPORT INFORMATION
  Report Type: Other
  Country: GB (occurrence: GB)
  Receive Date: 20230621
  Receipt Date: 20230621
  Transmission Date: 20230721
  Serious: Yes (Hospitalization)
  Sender: FDA-Public Use
  Company Number: GB-MACLEODS PHARMACEUTICALS US LTD-MAC2023041941

PATIENT

DRUGS (10)
  1. DONEPEZIL [Suspect]
     Active Substance: DONEPEZIL
     Indication: Product used for unknown indication
     Dosage: 5 MILLIGRAM,TITRATION BY MEMORY CLINIC 0 TABLET
     Route: 065
     Dates: start: 20221207, end: 20221223
  2. LEVOTHYROXINE SODIUM [Concomitant]
     Active Substance: LEVOTHYROXINE SODIUM
     Indication: Product used for unknown indication
     Dosage: 1 DOSAGE FORM, QD (75 MCG TABLET EACH MORNING)
     Route: 065
     Dates: start: 20221128
  3. LEVOTHYROXINE SODIUM [Concomitant]
     Active Substance: LEVOTHYROXINE SODIUM
     Dosage: 1 DOSAGE FORM, QD (50 MCG TABLET EACH MORNING AT LEAST 30 MINUTES BEFORE BREAKFAST)
  4. PERINDOPRIL ERBUMINE [Concomitant]
     Active Substance: PERINDOPRIL ERBUMINE
     Indication: Product used for unknown indication
     Dosage: 1 DOSAGE FORM, QD (STOPPED)
     Route: 065
     Dates: start: 20221114
  5. GLYCOPYRROLATE [Concomitant]
     Active Substance: GLYCOPYRROLATE
     Indication: Salivary hypersecretion
     Dosage: UNK, TID (ORAL SOLUTION SUGAR FREE 1.25 TO 2.5ML, AS NEEDED 60 ML)
     Route: 048
     Dates: start: 20221004
  6. FUROSEMIDE [Concomitant]
     Active Substance: FUROSEMIDE
     Indication: Product used for unknown indication
     Dosage: 1 DOSAGE FORM, QD (EACH MORNING, 28 TABLET )
     Route: 065
     Dates: start: 20220928
  7. FUROSEMIDE [Concomitant]
     Active Substance: FUROSEMIDE
     Dosage: 1 DOSAGE FORM, QD (EACH MORNING, 28 TABLET)
     Route: 065
     Dates: start: 20221031
  8. BISACODYL [Concomitant]
     Active Substance: BISACODYL
     Indication: Product used for unknown indication
     Dosage: 2 DOSAGE FORM, QD (AT NIGHT, 56 TABLET )
     Route: 065
     Dates: start: 20220914
  9. CAFFEINE [Concomitant]
     Active Substance: CAFFEINE
     Indication: Product used for unknown indication
     Dosage: UNK (CAFFEINE-CONTAINING DRINKS OR OTHER MEDICATION 28 TABLET DATE DISCONTINUED: 15 SEP 2022)
     Route: 065
  10. MEMANTINE [Concomitant]
     Active Substance: MEMANTINE
     Indication: Product used for unknown indication
     Dosage: UNK
     Route: 065

REACTIONS (2)
  - Musculoskeletal stiffness [Recovered/Resolved]
  - Agitation [Unknown]
